FAERS Safety Report 20004755 (Version 1)
Quarter: 2021Q4

REPORT INFORMATION
  Report Type: Spontaneous
  Country: JP (occurrence: JP)
  Receive Date: 20211028
  Receipt Date: 20211028
  Transmission Date: 20220304
  Serious: Yes (Other)
  Sender: FDA-Public Use
  Company Number: JP-NOVARTISPH-NVSJ2021JP017193

PATIENT
  Age: 82 Year
  Sex: Male

DRUGS (2)
  1. BROLUCIZUMAB [Suspect]
     Active Substance: BROLUCIZUMAB
     Indication: Choroidal neovascularisation
     Dosage: 6 MG
     Route: 031
  2. WARFARIN [Concomitant]
     Active Substance: WARFARIN
     Indication: Product used for unknown indication
     Dosage: UNK
     Route: 048

REACTIONS (9)
  - Retinal artery occlusion [Unknown]
  - Blindness transient [Unknown]
  - Retinal haemorrhage [Unknown]
  - Retinal vasculitis [Unknown]
  - Keratic precipitates [Unknown]
  - Vision blurred [Unknown]
  - Vitreous floaters [Unknown]
  - Anterior chamber cell [Unknown]
  - Vitreous opacities [Recovering/Resolving]
